FAERS Safety Report 16856330 (Version 1)
Quarter: 2019Q3

REPORT INFORMATION
  Report Type: Spontaneous
  Country: GB (occurrence: GB)
  Receive Date: 20190926
  Receipt Date: 20190926
  Transmission Date: 20191005
  Serious: Yes (Other)
  Sender: FDA-Public Use
  Company Number: GB-PFIZER INC-2008094917

PATIENT
  Age: 65 Year
  Sex: Female

DRUGS (4)
  1. SPASMONAL [Concomitant]
     Dosage: UNK, AS NEEDED (AS REQUIRED BASIS)
     Route: 048
  2. DICLOFENAC SODIUM. [Suspect]
     Active Substance: DICLOFENAC SODIUM
     Indication: OSTEOARTHRITIS
     Dosage: UNK, AS NEEDED (LONG-TERM DICLOFENAC, AS REQUIRED)
  3. DICLOFENAC SODIUM. [Suspect]
     Active Substance: DICLOFENAC SODIUM
     Indication: RADICULOPATHY
  4. SPASMONAL [Concomitant]
     Dosage: UNK
     Route: 048

REACTIONS (5)
  - Diarrhoea [Recovered/Resolved]
  - Gastrointestinal disorder [Recovering/Resolving]
  - Gastrointestinal inflammation [Recovering/Resolving]
  - Intestinal ulcer [Recovered/Resolved]
  - Intestinal stenosis [Recovering/Resolving]
